FAERS Safety Report 4788015-5 (Version None)
Quarter: 2005Q3

REPORT INFORMATION
  Report Type: 
  Country: None (occurrence: None)
  Receive Date: 20050914
  Receipt Date: 20050804
  Transmission Date: 20060218
  Serious: Yes (Other)
  Sender: FDA-Public Use
  Company Number: 413680

PATIENT
  Age: 77 Year
  Sex: Male

DRUGS (4)
  1. BONIVA [Suspect]
     Indication: OSTEOPOROSIS
     Dosage: 150 MG 1 PER MONTH ORAL
     Route: 048
     Dates: start: 20050801, end: 20050801
  2. METAMUCIL (PSYLLIUM HUSK) [Concomitant]
  3. HYPERTENSIVE NOS [Concomitant]
  4. CLONAZEPAM [Concomitant]

REACTIONS (8)
  - CHILLS [None]
  - DISTURBANCE IN ATTENTION [None]
  - DIZZINESS [None]
  - FAECES DISCOLOURED [None]
  - HEADACHE [None]
  - INFECTION [None]
  - SOMNOLENCE [None]
  - THINKING ABNORMAL [None]
